FAERS Safety Report 9909632 (Version 1)
Quarter: 2014Q1

REPORT INFORMATION
  Report Type: Spontaneous
  Country: US (occurrence: US)
  Receive Date: 20140219
  Receipt Date: 20140219
  Transmission Date: 20141002
  Serious: Yes (Other)
  Sender: FDA-Public Use
  Company Number: US-GLAXOSMITHKLINE-A1061429A

PATIENT
  Age: 53 Year
  Sex: Male

DRUGS (1)
  1. LOVAZA [Suspect]
     Indication: CARDIAC DISORDER
     Dosage: 1G UNKNOWN
     Route: 065
     Dates: start: 20120407

REACTIONS (1)
  - Pharyngeal operation [Unknown]
